FAERS Safety Report 20600922 (Version 2)
Quarter: 2022Q2

REPORT INFORMATION
  Report Type: Spontaneous
  Country: CA (occurrence: CA)
  Receive Date: 20220316
  Receipt Date: 20220620
  Transmission Date: 20220721
  Serious: Yes (Hospitalization, Other)
  Sender: FDA-Public Use
  Company Number: CA-SA-SAC20220308000999

PATIENT
  Age: 46 Year
  Sex: Female

DRUGS (23)
  1. RANITIDINE [Suspect]
     Active Substance: RANITIDINE
     Indication: Product used for unknown indication
     Dosage: 150 MG, BID
     Route: 065
  2. CETIRIZINE HYDROCHLORIDE [Suspect]
     Active Substance: CETIRIZINE HYDROCHLORIDE
     Indication: Product used for unknown indication
     Dosage: 10 MG, QD
     Route: 065
  3. HYDROXYZINE [Suspect]
     Active Substance: HYDROXYZINE HYDROCHLORIDE
     Indication: Product used for unknown indication
     Dosage: 25 MG, TID
     Route: 065
  4. HYDROXYZINE [Suspect]
     Active Substance: HYDROXYZINE HYDROCHLORIDE
     Dosage: 1 DF
  5. MONTELUKAST [Suspect]
     Active Substance: MONTELUKAST SODIUM
     Indication: Product used for unknown indication
     Dosage: 10 MG, QD
     Route: 065
  6. XOLAIR [Suspect]
     Active Substance: OMALIZUMAB
     Indication: Urticaria
     Dosage: 300 MG, QM
     Route: 058
     Dates: start: 20210211
  7. XOLAIR [Suspect]
     Active Substance: OMALIZUMAB
     Indication: Chronic spontaneous urticaria
     Dosage: 450 MG, QM
     Route: 058
  8. XOLAIR [Suspect]
     Active Substance: OMALIZUMAB
     Dosage: 450 MG, QM
     Route: 058
  9. XOLAIR [Suspect]
     Active Substance: OMALIZUMAB
     Dosage: 300 MG, QM
     Dates: start: 20210615
  10. XOLAIR [Suspect]
     Active Substance: OMALIZUMAB
     Dosage: 300 UNK
     Route: 058
     Dates: start: 20210713
  11. XOLAIR [Suspect]
     Active Substance: OMALIZUMAB
     Dosage: UNK
  12. XOLAIR [Suspect]
     Active Substance: OMALIZUMAB
     Dosage: 300 MG, QM
     Route: 058
     Dates: start: 20220224
  13. BILASTINE [Suspect]
     Active Substance: BILASTINE
     Indication: Chronic spontaneous urticaria
     Dosage: 1 DF, QD
     Route: 048
  14. BILASTINE [Suspect]
     Active Substance: BILASTINE
     Dosage: 2 MG, QD
     Route: 065
  15. LORATADINE [Suspect]
     Active Substance: LORATADINE
     Indication: Chronic spontaneous urticaria
     Dosage: 1 DF, QD
     Route: 065
  16. LORATADINE [Suspect]
     Active Substance: LORATADINE
     Dosage: 4 DF, QD
     Route: 048
  17. LORATADINE [Suspect]
     Active Substance: LORATADINE
     Dosage: UNK
  18. RUPATADINE FUMARATE [Concomitant]
     Active Substance: RUPATADINE FUMARATE
     Indication: Chronic spontaneous urticaria
     Dosage: 1 DF, BID
     Route: 048
  19. CYCLOSPORINE [Concomitant]
     Active Substance: CYCLOSPORINE
     Indication: Chronic spontaneous urticaria
     Dosage: 1 DF
     Route: 048
  20. HYDROXYZINE [Concomitant]
     Active Substance: HYDROXYZINE HYDROCHLORIDE
     Indication: Chronic spontaneous urticaria
     Dosage: 1 DF
     Route: 065
  21. METHOTREXATE [Concomitant]
     Active Substance: METHOTREXATE
     Indication: Product used for unknown indication
     Dosage: 1 DF
     Route: 065
     Dates: start: 20210802, end: 20210822
  22. QUETIAPINE [Concomitant]
     Active Substance: QUETIAPINE
     Indication: Product used for unknown indication
     Dosage: UNK
  23. PREDNISONE [Concomitant]
     Active Substance: PREDNISONE
     Indication: Chronic spontaneous urticaria
     Dosage: UNK
     Route: 048

REACTIONS (46)
  - Grip strength decreased [Not Recovered/Not Resolved]
  - Pain [Not Recovered/Not Resolved]
  - Sedation [Not Recovered/Not Resolved]
  - Back pain [Unknown]
  - Anxiety [Unknown]
  - Chronic spontaneous urticaria [Unknown]
  - Dry mouth [Unknown]
  - Hypoaesthesia [Unknown]
  - Paraesthesia [Unknown]
  - Skin disorder [Unknown]
  - Eye disorder [Unknown]
  - Pain in extremity [Unknown]
  - Urticaria [Unknown]
  - Angioedema [Not Recovered/Not Resolved]
  - Swelling face [Not Recovered/Not Resolved]
  - Swollen tongue [Not Recovered/Not Resolved]
  - Lip swelling [Not Recovered/Not Resolved]
  - Fatigue [Not Recovered/Not Resolved]
  - Heart rate increased [Not Recovered/Not Resolved]
  - Headache [Not Recovered/Not Resolved]
  - Pruritus [Unknown]
  - Rash [Unknown]
  - Nausea [Unknown]
  - Constipation [Unknown]
  - Malaise [Unknown]
  - Sleep disorder [Unknown]
  - Drug hypersensitivity [Unknown]
  - Frustration tolerance decreased [Not Recovered/Not Resolved]
  - Gait disturbance [Not Recovered/Not Resolved]
  - Lacrimation increased [Not Recovered/Not Resolved]
  - Mouth ulceration [Not Recovered/Not Resolved]
  - Pruritus [Not Recovered/Not Resolved]
  - Tension [Unknown]
  - Pain in extremity [Not Recovered/Not Resolved]
  - Abnormal dreams [Unknown]
  - Tremor [Unknown]
  - Drug interaction [Unknown]
  - Urticaria [Not Recovered/Not Resolved]
  - Abdominal pain [Not Recovered/Not Resolved]
  - Emotional disorder [Not Recovered/Not Resolved]
  - Arthralgia [Not Recovered/Not Resolved]
  - Drug intolerance [Unknown]
  - Insomnia [Not Recovered/Not Resolved]
  - Dizziness [Unknown]
  - Incorrect dose administered [Unknown]
  - Drug ineffective [Unknown]

NARRATIVE: CASE EVENT DATE: 20210101
